FAERS Safety Report 10272909 (Version 1)
Quarter: 2014Q2

REPORT INFORMATION
  Report Type: Spontaneous
  Country: US (occurrence: None)
  Receive Date: 20140630
  Receipt Date: 20140630
  Transmission Date: 20141212
  Serious: No
  Sender: FDA-Public Use
  Company Number: None

PATIENT
  Age: 54 Year
  Sex: Female
  Weight: 92.53 kg

DRUGS (1)
  1. ZOLPIDEM ER [Suspect]
     Indication: SLEEP DISORDER
     Dosage: 1 TABLET AT BEDTIME
     Route: 048
     Dates: start: 20140624, end: 20140626

REACTIONS (3)
  - Product quality issue [None]
  - Restlessness [None]
  - Nausea [None]
